FAERS Safety Report 8539484-6 (Version None)
Quarter: 2012Q3

REPORT INFORMATION
  Report Type: 
  Country: None (occurrence: None)
  Receive Date: 20120726
  Receipt Date: 20120720
  Transmission Date: 20120928
  Serious: Yes (Hospitalization)
  Sender: FDA-Public Use
  Company Number: CA-US-EMD SERONO, INC.-7128195

PATIENT
  Sex: Female

DRUGS (1)
  1. REBIF [Suspect]
     Indication: MULTIPLE SCLEROSIS
     Route: 058
     Dates: start: 20120321

REACTIONS (6)
  - VOMITING [None]
  - MUSCLE SPASTICITY [None]
  - MUSCLE SPASMS [None]
  - HYPOAESTHESIA [None]
  - DIZZINESS [None]
  - MULTIPLE SCLEROSIS RELAPSE [None]
